FAERS Safety Report 10535678 (Version 1)
Quarter: 2014Q4

REPORT INFORMATION
  Report Type: Spontaneous
  Country: US (occurrence: US)
  Receive Date: 20141022
  Receipt Date: 20141022
  Transmission Date: 20150529
  Serious: Yes (Hospitalization, Other)
  Sender: FDA-Public Use
  Company Number: US-RECKITT BENCKISER PHARMACEUTICAL, INC-RB-59534-2013

PATIENT

DRUGS (3)
  1. SUBOXONE [Suspect]
     Active Substance: BUPRENORPHINE HYDROCHLORIDE\NALOXONE HYDROCHLORIDE
     Indication: PAIN
     Dosage: SUBOXONE FILM; DOSING DETAILS UNKNOWN; TAKEN AS NEEDED
     Route: 060
     Dates: end: 20131006
  2. BUTRANS [Suspect]
     Active Substance: BUPRENORPHINE
     Indication: PAIN
     Dosage: DOSING DETAILS UNKNOWN; THE PATIENT WAS USING 1 PATCH WEEKLY
     Route: 062
     Dates: end: 20130930
  3. SUBOXONE [Suspect]
     Active Substance: BUPRENORPHINE HYDROCHLORIDE\NALOXONE HYDROCHLORIDE
     Indication: DRUG DEPENDENCE

REACTIONS (3)
  - Procedural pain [Recovering/Resolving]
  - Therapeutic product ineffective [Recovering/Resolving]
  - Back pain [Recovering/Resolving]

NARRATIVE: CASE EVENT DATE: 20131008
